FAERS Safety Report 5560724-X (Version None)
Quarter: 2007Q4

REPORT INFORMATION
  Report Type: 
  Country: None (occurrence: None)
  Receive Date: 20071215
  Receipt Date: 20071114
  Transmission Date: 20080405
  Serious: No
  Sender: FDA-Public Use
  Company Number: US-ABBOTT-07P-163-0425398-00

PATIENT
  Sex: Female
  Weight: 73.094 kg

DRUGS (1)
  1. HUMIRA [Suspect]
     Indication: CROHN'S DISEASE
     Dosage: LOADING DOSE
     Route: 058
     Dates: start: 20070801

REACTIONS (4)
  - CHILLS [None]
  - HEADACHE [None]
  - HYPERHIDROSIS [None]
  - TACHYCARDIA [None]
